FAERS Safety Report 11937534 (Version 6)
Quarter: 2020Q2

REPORT INFORMATION
  Report Type: Spontaneous
  Country: CA (occurrence: CA)
  Receive Date: 20160121
  Receipt Date: 20200406
  Transmission Date: 20200713
  Serious: Yes (Hospitalization, Other)
  Sender: FDA-Public Use
  Company Number: CA-ROCHE-1697386

PATIENT
  Age: 34 Year
  Sex: Female

DRUGS (9)
  1. SPIRIVA [Concomitant]
     Active Substance: TIOTROPIUM BROMIDE MONOHYDRATE
     Indication: PRODUCT USED FOR UNKNOWN INDICATION
     Route: 065
  2. VENTOLINE [SALBUTAMOL] [Concomitant]
     Active Substance: ALBUTEROL SULFATE
     Indication: PRODUCT USED FOR UNKNOWN INDICATION
     Dosage: 3 TO 4 TIMES IN A WEEK
     Route: 065
  3. BRICANYL [Concomitant]
     Active Substance: TERBUTALINE SULFATE
     Indication: PRODUCT USED FOR UNKNOWN INDICATION
     Dosage: 8 TIMES IN A DAY
     Route: 055
  4. XOLAIR [Suspect]
     Active Substance: OMALIZUMAB
     Indication: ASTHMA
     Route: 058
     Dates: start: 20110526
  5. CORTISONE [Concomitant]
     Active Substance: CORTISONE
     Indication: PRODUCT USED FOR UNKNOWN INDICATION
     Route: 065
  6. XOLAIR [Suspect]
     Active Substance: OMALIZUMAB
     Route: 058
     Dates: start: 20150921, end: 20150921
  7. XOLAIR [Suspect]
     Active Substance: OMALIZUMAB
     Route: 058
     Dates: start: 20191205
  8. SYMBICORT [Concomitant]
     Active Substance: BUDESONIDE\FORMOTEROL FUMARATE DIHYDRATE
     Indication: PRODUCT USED FOR UNKNOWN INDICATION
     Dosage: 2 DF, TID
     Route: 065
  9. XOLAIR [Suspect]
     Active Substance: OMALIZUMAB
     Route: 058
     Dates: start: 20140602

REACTIONS (26)
  - Dust allergy [Unknown]
  - Upper-airway cough syndrome [Unknown]
  - Airway remodelling [Unknown]
  - Productive cough [Not Recovered/Not Resolved]
  - Asthma [Recovering/Resolving]
  - Throat clearing [Unknown]
  - Nasopharyngitis [Unknown]
  - Wheezing [Not Recovered/Not Resolved]
  - Dyspnoea [Not Recovered/Not Resolved]
  - Perfume sensitivity [Unknown]
  - Insomnia [Unknown]
  - Pneumonia [Unknown]
  - Cough [Not Recovered/Not Resolved]
  - Frustration tolerance decreased [Unknown]
  - Sinusitis [Recovering/Resolving]
  - Hiatus hernia [Unknown]
  - Obstructive airways disorder [Unknown]
  - Blood immunoglobulin E increased [Unknown]
  - Perennial allergy [Unknown]
  - Chest discomfort [Not Recovered/Not Resolved]
  - Heart rate increased [Unknown]
  - Discomfort [Unknown]
  - Neutrophil count increased [Unknown]
  - Sensitivity to weather change [Unknown]
  - Hypersensitivity [Unknown]
  - Peak expiratory flow rate abnormal [Not Recovered/Not Resolved]

NARRATIVE: CASE EVENT DATE: 20151214
